FAERS Safety Report 9642687 (Version 1)
Quarter: 2013Q4

REPORT INFORMATION
  Report Type: Spontaneous
  Country: US (occurrence: US)
  Receive Date: 20131024
  Receipt Date: 20131024
  Transmission Date: 20140711
  Serious: No
  Sender: FDA-Public Use
  Company Number: US-TARO-2013P1018495

PATIENT
  Age: 53 Year
  Sex: Female
  Weight: 54.43 kg

DRUGS (5)
  1. PHENYTOIN SODIUM EXTENDED CAPSULES USP 100MG [Suspect]
     Indication: CONVULSION
     Route: 048
     Dates: start: 2012
  2. ONE A DAY VITAMIN [Concomitant]
  3. FISH OIL [Concomitant]
  4. VITAMIN D3 [Concomitant]
  5. FOLIC ACID [Concomitant]

REACTIONS (1)
  - Nail disorder [Not Recovered/Not Resolved]
